FAERS Safety Report 19253251 (Version 1)
Quarter: 2021Q2

REPORT INFORMATION
  Report Type: Spontaneous
  Country: US (occurrence: US)
  Receive Date: 20210513
  Receipt Date: 20210513
  Transmission Date: 20210717
  Serious: No
  Sender: FDA-Public Use
  Company Number: US-GILEAD-2021-0526386

PATIENT
  Sex: Male

DRUGS (3)
  1. HARVONI [Suspect]
     Active Substance: LEDIPASVIR\SOFOSBUVIR
     Indication: LIVER DISORDER
     Dosage: HARVONI 45?200MG ORAL PELLETS, SPRINKLE PELLETS ON 1 OR MORE SPOONFULS OF NON?ACIDIC FOODS AND TAKE
     Route: 048
  2. CLARITIN [Concomitant]
     Active Substance: LORATADINE
  3. FEXOFENADINE HYDROCHLORIDE. [Concomitant]
     Active Substance: FEXOFENADINE HYDROCHLORIDE

REACTIONS (1)
  - Vomiting [Not Recovered/Not Resolved]
